FAERS Safety Report 20850645 (Version 4)
Quarter: 2022Q3

REPORT INFORMATION
  Report Type: Spontaneous
  Country: US (occurrence: US)
  Receive Date: 20220519
  Receipt Date: 20220914
  Transmission Date: 20221027
  Serious: Yes (Other)
  Sender: FDA-Public Use
  Company Number: US-PFIZER INC-202200697040

PATIENT
  Age: 59 Year
  Sex: Female

DRUGS (1)
  1. IBRANCE [Suspect]
     Active Substance: PALBOCICLIB
     Dosage: UNK
     Dates: start: 20220421

REACTIONS (10)
  - Breast operation [Unknown]
  - Dizziness [Unknown]
  - Affective disorder [Unknown]
  - Ear congestion [Unknown]
  - Impaired driving ability [Unknown]
  - Somnolence [Unknown]
  - Hyperhidrosis [Unknown]
  - Chills [Unknown]
  - Mood altered [Unknown]
  - Depressed mood [Recovered/Resolved]

NARRATIVE: CASE EVENT DATE: 20220101
